FAERS Safety Report 7942880-9 (Version None)
Quarter: 2011Q4

REPORT INFORMATION
  Report Type: 
  Country: None (occurrence: None)
  Receive Date: 20111128
  Receipt Date: 20111117
  Transmission Date: 20120403
  Serious: Yes (Life-Threatening, Disabling)
  Sender: FDA-Public Use
  Company Number: JP-MERCK-1110USA04012

PATIENT
  Age: 63 Year
  Sex: Male

DRUGS (3)
  1. SINGULAIR [Suspect]
     Route: 048
     Dates: start: 20110928, end: 20111010
  2. FLUNASE (FLUTICASONE PROPIONATE) [Concomitant]
     Route: 055
     Dates: start: 20110928, end: 20111010
  3. FLOMOX [Concomitant]
     Dosage: DIVIDED TID
     Route: 048
     Dates: start: 20110924, end: 20110928

REACTIONS (1)
  - RENAL DISORDER [None]
